FAERS Safety Report 7069014 (Version 5)
Quarter: 2013Q1

REPORT INFORMATION
  Report Type: Report from Study
  Country: US (occurrence: US)
  Receive Date: 20090731
  Receipt Date: 20130122
  Transmission Date: 20140127
  Serious: Yes (Death, Hospitalization, Other)
  Sender: FDA-Public Use
  Company Number: US-JNJFOC-20090709700

PATIENT
  Age: 53 Year
  Sex: Male
  Weight: 61.59 kg

DRUGS (14)
  1. DOXORUBICIN HYDROCHLORIDE (DOXIL) [Suspect]
     Indication: LYMPHOMA AIDS RELATED
     Dosage: ON DAY 1
     Route: 042
     Dates: start: 20080408, end: 20080408
  2. DOXORUBICIN HYDROCHLORIDE (DOXIL) [Suspect]
     Indication: LYMPHOMA AIDS RELATED
     Dosage: 6TH CYCLE-49 MG IN TOTAL
     Route: 042
     Dates: start: 20080904, end: 20080904
  3. RITUXIMAB [Suspect]
     Indication: LYMPHOMA AIDS RELATED
     Dosage: CYCLE 1
     Route: 042
     Dates: start: 20080408, end: 20080408
  4. RITUXIMAB [Suspect]
     Indication: LYMPHOMA AIDS RELATED
     Dosage: CYCLE 6 - 611MG IN TOTAL
     Route: 042
     Dates: start: 20080904, end: 20080904
  5. CYCLOPHOSPHAMIDE [Suspect]
     Indication: LYMPHOMA AIDS RELATED
     Dosage: CYCLE 1
     Route: 042
     Dates: start: 20080408, end: 20080408
  6. CYCLOPHOSPHAMIDE [Suspect]
     Indication: LYMPHOMA AIDS RELATED
     Dosage: CYCLE 6-1222MG IN TOTAL
     Route: 042
     Dates: start: 20080904, end: 20080904
  7. VINCRISTINE [Suspect]
     Indication: LYMPHOMA AIDS RELATED
     Dosage: CYCLE 6-2MG IN TOTAL
     Route: 042
     Dates: start: 20080904, end: 20080904
  8. VINCRISTINE [Suspect]
     Indication: LYMPHOMA AIDS RELATED
     Dosage: NOT MORE THAN 2 MG
     Route: 042
     Dates: start: 20080408, end: 20080408
  9. PREDNISONE [Suspect]
     Indication: LYMPHOMA AIDS RELATED
     Dosage: DAYS 1-5
     Route: 048
     Dates: start: 20080408, end: 20080412
  10. PREDNISONE [Suspect]
     Indication: LYMPHOMA AIDS RELATED
     Dosage: CYCLE 6- 500MG TOTAL
     Route: 048
     Dates: start: 20080904, end: 20080908
  11. G-CSF [Concomitant]
     Indication: PALLIATIVE CARE
     Route: 065
  12. GM-CSF [Concomitant]
     Indication: PALLIATIVE CARE
     Route: 065
  13. PEGFILGRASTIM [Concomitant]
     Indication: PALLIATIVE CARE
     Route: 065
  14. UNKNOWN MEDICATION [Concomitant]
     Indication: ANTIFUNGAL PROPHYLAXIS
     Route: 065

REACTIONS (7)
  - Progressive multifocal leukoencephalopathy [Fatal]
  - Death [Fatal]
  - Blindness [Fatal]
  - Peripheral motor neuropathy [Fatal]
  - Neuropathy peripheral [Unknown]
  - Palmar-plantar erythrodysaesthesia syndrome [Unknown]
  - Optic nerve disorder [Unknown]
